FAERS Safety Report 26117105 (Version 2)
Quarter: 2025Q4

REPORT INFORMATION
  Report Type: Spontaneous
  Country: EU (occurrence: EU)
  Receive Date: 20251203
  Receipt Date: 20251223
  Transmission Date: 20260118
  Serious: Yes (Other)
  Sender: AMICUS THERAPEUTICS
  Company Number: EU-AMICUS THERAPEUTICS, INC.-AMI_4562

PATIENT
  Sex: Male

DRUGS (1)
  1. GALAFOLD [Suspect]
     Active Substance: MIGALASTAT HYDROCHLORIDE
     Indication: Fabry^s disease
     Dosage: 1 CAPSULE (123 MILLIGRAM) ONCE PER DOSE, QOD
     Route: 048
     Dates: start: 20231221

REACTIONS (1)
  - Heart transplant [Recovered/Resolved]

NARRATIVE: CASE EVENT DATE: 20230301
